FAERS Safety Report 13435268 (Version 1)
Quarter: 2017Q2

REPORT INFORMATION
  Report Type: Spontaneous
  Country: US (occurrence: US)
  Receive Date: 20170413
  Receipt Date: 20170413
  Transmission Date: 20170830
  Serious: No
  Sender: FDA-Public Use
  Company Number: US-GLAXOSMITHKLINE-US2017050404

PATIENT
  Age: 55 Year
  Sex: Male

DRUGS (1)
  1. ALLI [Suspect]
     Active Substance: ORLISTAT
     Indication: WEIGHT LOSS DIET
     Dosage: UNK
     Dates: start: 20170329

REACTIONS (3)
  - Feeling abnormal [Recovered/Resolved]
  - Palpitations [Unknown]
  - Nervousness [Unknown]

NARRATIVE: CASE EVENT DATE: 20170329
